FAERS Safety Report 5951077-3 (Version None)
Quarter: 2008Q4

REPORT INFORMATION
  Report Type: 
  Country: None (occurrence: None)
  Receive Date: 20081111
  Receipt Date: 20081111
  Transmission Date: 20090506
  Serious: Yes (Hospitalization)
  Sender: FDA-Public Use
  Company Number: None

PATIENT
  Age: 60 Year
  Sex: Male

DRUGS (3)
  1. MORPHINE [Suspect]
     Indication: ARTHRALGIA
     Dosage: 30 MG TID PO
     Route: 048
     Dates: start: 20070315, end: 20081025
  2. MORPHINE [Suspect]
     Indication: BACK PAIN
     Dosage: 30 MG TID PO
     Route: 048
     Dates: start: 20070315, end: 20081025
  3. ALPRAZOLAM [Suspect]
     Indication: ANXIETY
     Dosage: 0.5 MG TID PO
     Route: 048
     Dates: start: 20081029

REACTIONS (4)
  - CONFUSIONAL STATE [None]
  - DEHYDRATION [None]
  - DRUG ABUSE [None]
  - SEDATION [None]
